FAERS Safety Report 20172518 (Version 1)
Quarter: 2021Q4

REPORT INFORMATION
  Report Type: Spontaneous
  Country: US (occurrence: US)
  Receive Date: 20211210
  Receipt Date: 20211210
  Transmission Date: 20220303
  Serious: Yes (Death, Hospitalization)
  Sender: FDA-Public Use
  Company Number: US-MALLINCKRODT-T202104680

PATIENT
  Age: 60 Year
  Sex: Male
  Weight: 154 kg

DRUGS (2)
  1. H.P. ACTHAR [Suspect]
     Active Substance: CORTICOTROPIN
     Indication: Systemic lupus erythematosus
     Dosage: 80 UNITS (1 MILLILITER), 3 TIMES PER WK
     Route: 058
     Dates: start: 202010
  2. H.P. ACTHAR [Suspect]
     Active Substance: CORTICOTROPIN
     Dosage: 80 UNITS (1 MILLILITER), 3 TIMES PER WK
     Route: 058

REACTIONS (4)
  - Death [Fatal]
  - Cardiac failure congestive [Unknown]
  - Swelling [Unknown]
  - Malaise [Recovering/Resolving]

NARRATIVE: CASE EVENT DATE: 20211101
